FAERS Safety Report 24364833 (Version 2)
Quarter: 2024Q4

REPORT INFORMATION
  Report Type: Report from Study
  Country: US (occurrence: US)
  Receive Date: 20240926
  Receipt Date: 20241011
  Transmission Date: 20250115
  Serious: Yes (Other)
  Sender: UCB
  Company Number: US-UCBSA-2024047203

PATIENT
  Age: 38 Year
  Sex: Female
  Weight: 53.56 kg

DRUGS (9)
  1. CERTOLIZUMAB PEGOL [Suspect]
     Active Substance: CERTOLIZUMAB PEGOL
     Indication: Ankylosing spondylitis
     Dosage: 400 MILLIGRAM, EV 2 WEEKS(QOW)
     Route: 058
     Dates: start: 20240909
  2. CERTOLIZUMAB PEGOL [Suspect]
     Active Substance: CERTOLIZUMAB PEGOL
     Indication: Axial spondyloarthritis
  3. FOLIC ACID [Concomitant]
     Active Substance: FOLIC ACID
     Indication: Product used for unknown indication
     Dosage: 1 MILLIGRAM
     Dates: start: 20230612, end: 20240909
  4. METHOCARBAMOL [Concomitant]
     Active Substance: METHOCARBAMOL
     Indication: Product used for unknown indication
     Dosage: 750 MILLIGRAM
     Dates: start: 20230715
  5. OMEPRAZOLE [Concomitant]
     Active Substance: OMEPRAZOLE
     Indication: Product used for unknown indication
     Dosage: 20 MILLIGRAM
     Dates: start: 20230612
  6. OXYCODONE AND ACETAMINOPHEN [Concomitant]
     Active Substance: ACETAMINOPHEN\OXYCODONE HYDROCHLORIDE
     Indication: Product used for unknown indication
     Dosage: 5 MG-325 MG
     Dates: start: 20230714
  7. SOMA [Concomitant]
     Active Substance: CARISOPRODOL
     Indication: Axial spondyloarthritis
     Dosage: TAKE 1 TABLET BY ORAL ROUTE 3 TIMES EVERY CLAY BEFORE MEALS AND AT BEDTIME AS NEEDED
  8. RINVOQ [Concomitant]
     Active Substance: UPADACITINIB
     Indication: Axial spondyloarthritis
     Dosage: 1 DOSAGE FORM, ONCE DAILY (QD)
     Route: 048
     Dates: start: 20240208, end: 20240909
  9. NORCO [Concomitant]
     Active Substance: ACETAMINOPHEN\HYDROCODONE BITARTRATE
     Indication: Axial spondyloarthritis
     Dosage: 5 MILLIGRAM

REACTIONS (2)
  - Psoriatic arthropathy [Unknown]
  - Treatment failure [Unknown]

NARRATIVE: CASE EVENT DATE: 20240901
